FAERS Safety Report 5710726-5 (Version None)
Quarter: 2008Q2

REPORT INFORMATION
  Report Type: 
  Country: None (occurrence: None)
  Receive Date: 20080421
  Receipt Date: 20080408
  Transmission Date: 20081010
  Serious: Yes (Hospitalization)
  Sender: FDA-Public Use
  Company Number: US-JNJFOC-20080402436

PATIENT
  Age: 54 Year
  Sex: Male
  Weight: 82.1 kg

DRUGS (5)
  1. REMICADE [Suspect]
     Indication: COLITIS ULCERATIVE
     Route: 042
  2. ASACOL [Concomitant]
  3. IRON [Concomitant]
  4. WARFARIN [Concomitant]
  5. STEROIDS [Concomitant]

REACTIONS (3)
  - ANAEMIA [None]
  - DIARRHOEA HAEMORRHAGIC [None]
  - INTERNATIONAL NORMALISED RATIO INCREASED [None]
